FAERS Safety Report 9603439 (Version 1)
Quarter: 2013Q4

REPORT INFORMATION
  Report Type: Spontaneous
  Country: CA (occurrence: CA)
  Receive Date: 20131007
  Receipt Date: 20131007
  Transmission Date: 20140711
  Serious: Yes (Disabling, Other)
  Sender: FDA-Public Use
  Company Number: CA-WATSON-2013-17405

PATIENT
  Age: 31 Year
  Sex: Male

DRUGS (2)
  1. TACROLIMUS (UNKNOWN) [Suspect]
     Indication: PROPHYLAXIS AGAINST TRANSPLANT REJECTION
     Dosage: UNK
     Route: 065
  2. SALINE (UNKNOWN) [Suspect]
     Indication: CENTRAL VENOUS CATHETERISATION
     Dosage: 5 TO 10 ML , SINGLE
     Route: 042

REACTIONS (2)
  - Posterior reversible encephalopathy syndrome [Recovered/Resolved]
  - Incorrect route of drug administration [Unknown]
